FAERS Safety Report 7019957-8 (Version None)
Quarter: 2010Q3

REPORT INFORMATION
  Report Type: 
  Country: None (occurrence: None)
  Receive Date: 20100927
  Receipt Date: 20100917
  Transmission Date: 20110219
  Serious: Yes (Other)
  Sender: FDA-Public Use
  Company Number: 2010SP050237

PATIENT
  Sex: Female

DRUGS (1)
  1. INTERFERON [Suspect]
     Indication: HEPATITIS C
     Dosage: ; QOD;

REACTIONS (4)
  - ALANINE AMINOTRANSFERASE INCREASED [None]
  - AMMONIA INCREASED [None]
  - ASPARTATE AMINOTRANSFERASE INCREASED [None]
  - UNEVALUABLE EVENT [None]
